FAERS Safety Report 12352581 (Version 1)
Quarter: 2016Q2

REPORT INFORMATION
  Report Type: Spontaneous
  Country: US (occurrence: US)
  Receive Date: 20160510
  Receipt Date: 20160510
  Transmission Date: 20160815
  Serious: Yes (Other)
  Sender: FDA-Public Use
  Company Number: US-ASTRAZENECA-2016SE48465

PATIENT
  Age: 48 Year
  Sex: Female

DRUGS (2)
  1. CARAFATE [Concomitant]
     Active Substance: SUCRALFATE
     Route: 048
     Dates: end: 2014
  2. PRILOSEC OTC [Suspect]
     Active Substance: OMEPRAZOLE MAGNESIUM
     Route: 048
     Dates: start: 2006, end: 2015

REACTIONS (4)
  - Product use issue [Unknown]
  - Nausea [Recovered/Resolved]
  - Gastric polyps [Recovered/Resolved]
  - Abdominal pain [Recovered/Resolved]

NARRATIVE: CASE EVENT DATE: 201503
